FAERS Safety Report 24444029 (Version 2)
Quarter: 2024Q4

REPORT INFORMATION
  Report Type: Report from Study
  Country: US (occurrence: US)
  Receive Date: 20241016
  Receipt Date: 20241017
  Transmission Date: 20250114
  Serious: No
  Sender: ROCHE
  Company Number: US-ROCHE-2486246

PATIENT
  Age: 53 Year
  Sex: Female

DRUGS (3)
  1. RITUXAN [Suspect]
     Active Substance: RITUXIMAB
     Indication: Myasthenia gravis
     Dosage: INFUSE 686 MG INTRAVENOUSLY DAY 1, 8, 15 AND  22 X VIAL: 10 MG.?INFUSE 694 MG INTRAVENOUSLY DAYS 1,
     Route: 042
  2. RITUXAN [Suspect]
     Active Substance: RITUXIMAB
     Dosage: INFUSE 694 MG INTRAVENOUSLY DAYS 1, 8, 15, + 22 EVERY 6 MONTH(S) FOR 4 CYCLES?VIAL: 50 ML, 10 ML
     Route: 042
  3. PREDNISONE [Concomitant]
     Active Substance: PREDNISONE
     Dates: start: 20230123

REACTIONS (3)
  - Off label use [Unknown]
  - No adverse event [Unknown]
  - Intercepted product storage error [Unknown]
